FAERS Safety Report 6303808-0 (Version None)
Quarter: 2009Q3

REPORT INFORMATION
  Report Type: 
  Country: None (occurrence: None)
  Receive Date: 20090810
  Receipt Date: 20090731
  Transmission Date: 20100115
  Serious: Yes (Life-Threatening)
  Sender: FDA-Public Use
  Company Number: JP-MERCK-0907USA05051

PATIENT
  Age: 45 Year
  Sex: Male

DRUGS (2)
  1. PEPCID RPD [Suspect]
     Route: 048
     Dates: start: 20090724
  2. PEPCID [Suspect]
     Route: 042
     Dates: start: 20090722

REACTIONS (1)
  - EPILEPSY [None]
